FAERS Safety Report 6131820-3 (Version None)
Quarter: 2009Q1

REPORT INFORMATION
  Report Type: 
  Country: None (occurrence: None)
  Receive Date: 20090325
  Receipt Date: 20090318
  Transmission Date: 20090719
  Serious: Yes (Hospitalization)
  Sender: FDA-Public Use
  Company Number: US-BAYER-200916907GPV

PATIENT
  Age: 48 Year
  Sex: Male
  Weight: 67 kg

DRUGS (10)
  1. SORAFENIB [Suspect]
     Indication: HEPATIC NEOPLASM MALIGNANT
     Dosage: TOTAL DAILY DOSE: 800 MG
     Route: 048
     Dates: start: 20090204, end: 20090224
  2. LASIX [Concomitant]
     Indication: PLEURAL EFFUSION
     Route: 065
     Dates: start: 20081212
  3. MUCOSOLVAN [Concomitant]
     Indication: COUGH
     Dosage: TOTAL DAILY DOSE: 90 MG
     Route: 065
  4. ALDACTONE [Concomitant]
     Indication: PLEURAL EFFUSION
     Dosage: TOTAL DAILY DOSE: 100 MG
     Route: 065
     Dates: start: 20081205
  5. NEXIUM [Concomitant]
     Indication: DUODENAL ULCER
     Dosage: TOTAL DAILY DOSE: 40 MG
     Route: 065
     Dates: start: 20090122
  6. SENOKOT [Concomitant]
     Indication: CONSTIPATION
     Dosage: TOTAL DAILY DOSE: 7.5 MG
     Route: 065
     Dates: start: 20081116
  7. SCANOL [Concomitant]
     Indication: PYREXIA
     Dosage: TOTAL DAILY DOSE: 2000 MG
     Route: 065
     Dates: start: 20090218
  8. MAGNESIUM OXIDE [Concomitant]
     Indication: CONSTIPATION
     Dosage: TOTAL DAILY DOSE: 500 MG
     Route: 065
     Dates: start: 20081116
  9. MEDICON A [Concomitant]
     Indication: COUGH
     Dosage: TOTAL DAILY DOSE: 390 MG
     Route: 065
     Dates: start: 20081112
  10. BROWN MIXTURE [Concomitant]
     Indication: COUGH
     Dosage: TOTAL DAILY DOSE: 40 ML
     Route: 065
     Dates: start: 20081129

REACTIONS (2)
  - PYREXIA [None]
  - SKIN ULCER [None]
